FAERS Safety Report 4703882-9 (Version None)
Quarter: 2005Q2

REPORT INFORMATION
  Report Type: 
  Country: None (occurrence: None)
  Receive Date: 20050630
  Receipt Date: 20050602
  Transmission Date: 20051028
  Serious: Yes (Other)
  Sender: FDA-Public Use
  Company Number: PHBS2005CA07980

PATIENT
  Age: 77 Year
  Sex: Female

DRUGS (1)
  1. EXELON [Suspect]
     Dosage: 3 MG/DAY
     Route: 048
     Dates: start: 20050601

REACTIONS (3)
  - CHOKING [None]
  - SALIVA ALTERED [None]
  - SALIVARY HYPERSECRETION [None]
